FAERS Safety Report 7195627-0 (Version None)
Quarter: 2010Q4

REPORT INFORMATION
  Report Type: 
  Country: None (occurrence: None)
  Receive Date: 20101223
  Receipt Date: 20101217
  Transmission Date: 20110411
  Serious: Yes (Hospitalization)
  Sender: FDA-Public Use
  Company Number: IT-MERCK-1011ITA00039

PATIENT
  Age: 61 Year
  Sex: Male

DRUGS (6)
  1. SINGULAIR [Suspect]
     Indication: ASTHMA
     Route: 048
     Dates: start: 20101103, end: 20101108
  2. SINGULAIR [Suspect]
     Route: 048
     Dates: start: 20020101, end: 20070101
  3. ESOMEPRAZOLE MAGNESIUM [Concomitant]
     Route: 065
  4. PANCRELIPASE [Concomitant]
     Route: 065
  5. BUDESONIDE AND FORMOTEROL FUMARATE [Concomitant]
     Route: 065
  6. NUTRITIONAL SUPPLEMENTS [Concomitant]
     Route: 065

REACTIONS (1)
  - HEPATITIS [None]
